FAERS Safety Report 26088477 (Version 1)
Quarter: 2025Q4

REPORT INFORMATION
  Report Type: Report from Study
  Country: CA (occurrence: CA)
  Receive Date: 20251125
  Receipt Date: 20251125
  Transmission Date: 20260117
  Serious: Yes (Other)
  Sender: ABBVIE
  Company Number: CA-ABBVIE-6559526

PATIENT
  Age: 40 Year
  Sex: Male

DRUGS (1)
  1. SKYRIZI [Suspect]
     Active Substance: RISANKIZUMAB-RZAA
     Indication: Crohn^s disease
     Route: 058

REACTIONS (7)
  - Laparoscopy [Unknown]
  - Laparotomy [Unknown]
  - Small intestinal resection [Unknown]
  - Small intestinal anastomosis [Unknown]
  - Colonic fistula [Unknown]
  - Intestinal anastomosis [Unknown]
  - Intestinal resection [Unknown]

NARRATIVE: CASE EVENT DATE: 20251105
